FAERS Safety Report 8991219 (Version 2)
Quarter: 2013Q1

REPORT INFORMATION
  Report Type: Spontaneous
  Country: US (occurrence: None)
  Receive Date: 20121219
  Receipt Date: 20130122
  Transmission Date: 20140127
  Serious: Yes (Death)
  Sender: FDA-Public Use
  Company Number: 2012-1507

PATIENT
  Age: 77 Year
  Sex: Female
  Weight: 127.9 kg

DRUGS (4)
  1. KYPROLIS (CARFILZOMIB) (15 MILLIGRAM(S)/SQ.METER, INJECTION FOR INFUSION) (CARFILZOMIB) [Suspect]
     Indication: PLASMA CELL MYELOMA
     Route: 042
     Dates: start: 20121030, end: 20121121
  2. DEXAMETHASONE (DEXAMETHASONE) (DEXAMETHASONE) [Concomitant]
  3. INSULIN SLIDING SCALE (INSULIN) (INSULIN) [Concomitant]
  4. OXYGEN [Concomitant]

REACTIONS (6)
  - Fatigue [None]
  - Blood glucose increased [None]
  - Feeling hot [None]
  - Feeling cold [None]
  - Fall [None]
  - Plasma cell myeloma [None]
